FAERS Safety Report 9495216 (Version 3)
Quarter: 2014Q2

REPORT INFORMATION
  Report Type: Report from Study
  Country: AU (occurrence: AU)
  Receive Date: 20130903
  Receipt Date: 20140528
  Transmission Date: 20141212
  Serious: No
  Sender: FDA-Public Use
  Company Number: AU-GILEAD-2013-0082381

PATIENT
  Age: 32 Year
  Sex: Female
  Weight: 50 kg

DRUGS (2)
  1. AMBRISENTAN [Suspect]
     Indication: PULMONARY ARTERIAL HYPERTENSION
     Dosage: UNK UNK, QD
     Route: 050
     Dates: start: 20120524
  2. TADALAFIL [Suspect]
     Indication: PULMONARY ARTERIAL HYPERTENSION
     Dosage: UNK UNK, QD
     Route: 050
     Dates: start: 20120524

REACTIONS (2)
  - Exposure via body fluid [Recovered/Resolved]
  - Live birth [Recovered/Resolved]
